FAERS Safety Report 8314974-X (Version None)
Quarter: 2012Q2

REPORT INFORMATION
  Report Type: 
  Country: None (occurrence: None)
  Receive Date: 20120426
  Receipt Date: 20120103
  Transmission Date: 20120825
  Serious: No
  Sender: FDA-Public Use
  Company Number: US-MUTUAL PHARMACEUTICAL COMPANY, INC.-CLCY20120002

PATIENT
  Sex: Female
  Weight: 90.8 kg

DRUGS (2)
  1. COLCRYS [Suspect]
     Indication: GOUT
     Route: 048
     Dates: start: 20110101, end: 20110101
  2. UNSPECIFIED MEDICATION [Concomitant]
     Indication: PRODUCT USED FOR UNKNOWN INDICATION

REACTIONS (5)
  - DYSPNOEA [None]
  - DIARRHOEA [None]
  - ABDOMINAL PAIN UPPER [None]
  - MUSCULAR WEAKNESS [None]
  - FATIGUE [None]
